FAERS Safety Report 13424724 (Version 1)
Quarter: 2017Q2

REPORT INFORMATION
  Report Type: Report from Study
  Country: US (occurrence: US)
  Receive Date: 20170410
  Receipt Date: 20170410
  Transmission Date: 20170830
  Serious: Yes (Other)
  Sender: FDA-Public Use
  Company Number: US-009507513-1704USA001788

PATIENT
  Sex: Male

DRUGS (9)
  1. PEMBROLIZUMAB. [Suspect]
     Active Substance: PEMBROLIZUMAB
     Indication: NON-SMALL CELL LUNG CANCER
     Dosage: 200 MG, EACH 21 DAYS
     Route: 042
     Dates: start: 20161004, end: 20161004
  2. PEMBROLIZUMAB. [Suspect]
     Active Substance: PEMBROLIZUMAB
     Dosage: 200 MG, EACH 21 DAYS
     Route: 042
     Dates: start: 20170117, end: 20170117
  3. PEMBROLIZUMAB. [Suspect]
     Active Substance: PEMBROLIZUMAB
     Dosage: 200 MG, EACH 21 DAYS
     Route: 042
     Dates: start: 20161025, end: 20161025
  4. PEMBROLIZUMAB. [Suspect]
     Active Substance: PEMBROLIZUMAB
     Dosage: 200 MG, EACH 21 DAYS
     Route: 042
     Dates: start: 20170228, end: 20170228
  5. PEMBROLIZUMAB. [Suspect]
     Active Substance: PEMBROLIZUMAB
     Dosage: 200 MG, EACH 21 DAYS
     Route: 042
     Dates: start: 20161115, end: 20161115
  6. PEMBROLIZUMAB. [Suspect]
     Active Substance: PEMBROLIZUMAB
     Dosage: 200 MG, EACH 21 DAYS
     Route: 042
     Dates: start: 20161227, end: 20161227
  7. PEMBROLIZUMAB. [Suspect]
     Active Substance: PEMBROLIZUMAB
     Dosage: 200 MG, EACH 21 DAYS
     Route: 042
     Dates: start: 20170321, end: 20170321
  8. PEMBROLIZUMAB. [Suspect]
     Active Substance: PEMBROLIZUMAB
     Dosage: 200 MG, EACH 21 DAYS
     Route: 042
     Dates: start: 20161206, end: 20161206
  9. PEMBROLIZUMAB. [Suspect]
     Active Substance: PEMBROLIZUMAB
     Dosage: 200 MG, EACH 21 DAYS
     Route: 042
     Dates: start: 20170207, end: 20170207

REACTIONS (21)
  - Decreased appetite [Recovered/Resolved]
  - Cough [Recovered/Resolved]
  - Muscle spasms [Recovered/Resolved]
  - Malignant neoplasm progression [Unknown]
  - Red blood cell count decreased [Recovered/Resolved]
  - Mean platelet volume decreased [Recovered/Resolved]
  - Infusion site discolouration [Unknown]
  - Back pain [Recovered/Resolved]
  - Rhinorrhoea [Unknown]
  - Human papilloma virus test positive [Unknown]
  - Lymphocyte count decreased [Recovered/Resolved]
  - Infusion site discolouration [Unknown]
  - Fatigue [Recovered/Resolved]
  - Dizziness postural [Unknown]
  - Dupuytren^s contracture operation [Unknown]
  - Rhinorrhoea [Recovered/Resolved]
  - Thyroid function test abnormal [Unknown]
  - Blood pressure increased [Unknown]
  - Skin irritation [Unknown]
  - Prostatic specific antigen increased [Unknown]
  - Skin exfoliation [Recovering/Resolving]

NARRATIVE: CASE EVENT DATE: 2016
